FAERS Safety Report 9644161 (Version 2)
Quarter: 2013Q4

REPORT INFORMATION
  Report Type: Spontaneous
  Country: JP (occurrence: JP)
  Receive Date: 20131024
  Receipt Date: 20131128
  Transmission Date: 20140711
  Serious: Yes (Other)
  Sender: FDA-Public Use
  Company Number: JP-009507513-1310JPN009243

PATIENT
  Age: 45 Year
  Sex: Male
  Weight: 97 kg

DRUGS (4)
  1. ESLAX INTRAVENOUS 50MG/5.0ML [Suspect]
     Indication: NEUROMUSCULAR BLOCKING THERAPY
     Dosage: 50 MG, QD
     Route: 042
  2. FENTANYL CITRATE [Suspect]
     Indication: INDUCTION OF ANAESTHESIA
     Dosage: 100 MICROGRAM, QD
     Route: 065
  3. PROPOFOL [Suspect]
     Indication: INDUCTION OF ANAESTHESIA
     Dosage: 200 MG, QD
     Route: 042
  4. SEVOFLURANE [Suspect]
     Indication: MAINTENANCE OF ANAESTHESIA
     Dosage: 2-2.5%, QD
     Route: 055

REACTIONS (1)
  - Pulmonary embolism [Recovered/Resolved]
